FAERS Safety Report 16333753 (Version 8)
Quarter: 2024Q2

REPORT INFORMATION
  Report Type: Spontaneous
  Country: BR (occurrence: BR)
  Receive Date: 20190520
  Receipt Date: 20240521
  Transmission Date: 20240716
  Serious: Yes (Hospitalization, Disabling, Other)
  Sender: FDA-Public Use
  Company Number: BR-BIOMARINAP-BR-2019-123728

PATIENT

DRUGS (4)
  1. LARONIDASE [Suspect]
     Active Substance: LARONIDASE
     Indication: Mucopolysaccharidosis I
     Dosage: UNK
     Route: 042
     Dates: start: 2007
  2. LARONIDASE [Suspect]
     Active Substance: LARONIDASE
     Dosage: 16 DF, Q15D
     Route: 042
     Dates: start: 20080501
  3. LARONIDASE [Suspect]
     Active Substance: LARONIDASE
     Dosage: UNK, QW
     Route: 042
     Dates: start: 202209
  4. BOTOX [Concomitant]
     Active Substance: ONABOTULINUMTOXINA
     Dosage: APPLICATION TWICE A YEAR

REACTIONS (17)
  - Sitting disability [Not Recovered/Not Resolved]
  - Quadriplegia [Unknown]
  - Intellectual disability [Unknown]
  - Arthropathy [Unknown]
  - Joint dislocation [Recovering/Resolving]
  - Bone disorder [Recovering/Resolving]
  - Foot deformity [Recovering/Resolving]
  - Pain [Not Recovered/Not Resolved]
  - Scoliosis [Not Recovered/Not Resolved]
  - Spinal disorder [Not Recovered/Not Resolved]
  - Condition aggravated [Not Recovered/Not Resolved]
  - Speech disorder [Unknown]
  - Communication disorder [Unknown]
  - Weight decreased [Not Recovered/Not Resolved]
  - Procedural pain [Recovering/Resolving]
  - Wrong technique in product usage process [Unknown]
  - Off label use [Unknown]

NARRATIVE: CASE EVENT DATE: 20080501
